FAERS Safety Report 4490815-6 (Version None)
Quarter: 2004Q4

REPORT INFORMATION
  Report Type: 
  Country: None (occurrence: None)
  Receive Date: 20041027
  Receipt Date: 20041014
  Transmission Date: 20050328
  Serious: Yes (Hospitalization, Other)
  Sender: FDA-Public Use
  Company Number: USA-2004-0016298

PATIENT
  Age: 40 Year
  Sex: Female
  Weight: 93 kg

DRUGS (9)
  1. OXYCONTIN [Suspect]
     Indication: PAIN
     Dosage: 40 MG, Q12H, ORAL
     Route: 048
     Dates: start: 20040707, end: 20040714
  2. NEURONTIN [Concomitant]
  3. NAPROSYN [Concomitant]
  4. COMBIVENT [Concomitant]
  5. PROTIUM (PANTOPRAZOLE SODIUM) [Concomitant]
  6. POTASSIUM (POTASSIUM) [Concomitant]
  7. LASIX [Concomitant]
  8. WELLBUTRIN [Concomitant]
  9. PAXIL [Concomitant]

REACTIONS (5)
  - ACCIDENTAL OVERDOSE [None]
  - COMA [None]
  - MEDICATION ERROR [None]
  - RESPIRATORY DEPRESSION [None]
  - TREATMENT NONCOMPLIANCE [None]
